FAERS Safety Report 11832532 (Version 2)
Quarter: 2015Q4

REPORT INFORMATION
  Report Type: Spontaneous
  Country: US (occurrence: US)
  Receive Date: 20151214
  Receipt Date: 20151222
  Transmission Date: 20160305
  Serious: No
  Sender: FDA-Public Use
  Company Number: US-PFIZER INC-2015438913

PATIENT
  Sex: Female

DRUGS (1)
  1. XALKORI [Suspect]
     Active Substance: CRIZOTINIB
     Indication: NON-SMALL CELL LUNG CANCER
     Dosage: UNK

REACTIONS (6)
  - Heart rate decreased [Unknown]
  - Visual impairment [Unknown]
  - Dysgeusia [Unknown]
  - Pyrexia [Unknown]
  - Constipation [Unknown]
  - Pain [Unknown]
